FAERS Safety Report 8330154-6 (Version None)
Quarter: 2012Q2

REPORT INFORMATION
  Report Type: 
  Country: None (occurrence: None)
  Receive Date: 20120502
  Receipt Date: 20120424
  Transmission Date: 20120825
  Serious: Yes (Hospitalization, Other)
  Sender: FDA-Public Use
  Company Number: US-ALEXION-A201200616

PATIENT
  Sex: Male
  Weight: 82 kg

DRUGS (10)
  1. OMEPRAZOLE [Concomitant]
     Indication: PRODUCT USED FOR UNKNOWN INDICATION
     Dosage: UNK
  2. LACTULOSE [Concomitant]
     Indication: HEPATIC CIRRHOSIS
  3. LACTULOSE [Concomitant]
     Indication: ENCEPHALOPATHY
  4. RIFAXIMIN [Concomitant]
     Indication: PRODUCT USED FOR UNKNOWN INDICATION
     Dosage: UNK
  5. COUMADIN [Concomitant]
     Indication: PRODUCT USED FOR UNKNOWN INDICATION
     Dosage: UNK
     Dates: end: 20120301
  6. SOLIRIS [Suspect]
     Indication: PAROXYSMAL NOCTURNAL HAEMOGLOBINURIA
     Dosage: 900 MG, Q2W
     Route: 042
  7. FOLIC ACID [Concomitant]
     Indication: PRODUCT USED FOR UNKNOWN INDICATION
     Dosage: UNK
  8. PROPRANOLOL [Concomitant]
     Indication: PRODUCT USED FOR UNKNOWN INDICATION
     Dosage: UNK UNK, Q2W
  9. NEURONTIN [Concomitant]
     Indication: PRODUCT USED FOR UNKNOWN INDICATION
     Dosage: UNK
  10. LACTULOSE [Concomitant]
     Indication: HEPATIC FAILURE
     Dosage: 30 G 5 X DAY
     Route: 048

REACTIONS (10)
  - PLATELET COUNT DECREASED [None]
  - PULMONARY MASS [None]
  - HEPATIC ENCEPHALOPATHY [None]
  - INTERNATIONAL NORMALISED RATIO ABNORMAL [None]
  - BENIGN PROSTATIC HYPERPLASIA [None]
  - CONFUSIONAL STATE [None]
  - PNEUMONIA [None]
  - HAEMOPTYSIS [None]
  - URINARY TRACT INFECTION [None]
  - AMMONIA INCREASED [None]
